FAERS Safety Report 4738846-2 (Version None)
Quarter: 2005Q3

REPORT INFORMATION
  Report Type: 
  Country: None (occurrence: None)
  Receive Date: 20050804
  Receipt Date: 20050727
  Transmission Date: 20060218
  Serious: Yes (Hospitalization)
  Sender: FDA-Public Use
  Company Number: 2005046197

PATIENT
  Age: 67 Year
  Sex: Male
  Weight: 83 kg

DRUGS (5)
  1. SORTIS (ATORVASTATIN) [Suspect]
     Indication: LIPID METABOLISM DISORDER
     Dosage: 20 MG (1 IN 1 D), ORAL
     Route: 048
     Dates: start: 20010101, end: 20050309
  2. MULTIVITAMIN [Suspect]
     Indication: ILL-DEFINED DISORDER
     Dosage: ORAL
     Route: 048
     Dates: end: 20050301
  3. BELOC-ZOK  MITE (METOPROLOL SUCCINATE) [Concomitant]
  4. ACETYLSALICYLIC ACID SRT [Concomitant]
  5. BETA BLOCKING AGENTS (BETA BLOCKING AGENTS) [Concomitant]

REACTIONS (17)
  - ANGIONEUROTIC OEDEMA [None]
  - CANDIDIASIS [None]
  - CHILLS [None]
  - DYSPNOEA [None]
  - ERYTHEMA [None]
  - FUNGAL SKIN INFECTION [None]
  - HYPERSENSITIVITY [None]
  - MUSCULOSKELETAL STIFFNESS [None]
  - NASOPHARYNGITIS [None]
  - ONYCHOMYCOSIS [None]
  - ORAL CANDIDIASIS [None]
  - PRURITUS [None]
  - SKIN ATROPHY [None]
  - SKIN IRRITATION [None]
  - THROAT TIGHTNESS [None]
  - TINEA PEDIS [None]
  - URTICARIA [None]
